FAERS Safety Report 19424355 (Version 1)
Quarter: 2021Q2

REPORT INFORMATION
  Report Type: Spontaneous
  Country: US (occurrence: US)
  Receive Date: 20210616
  Receipt Date: 20210616
  Transmission Date: 20210717
  Serious: No
  Sender: FDA-Public Use
  Company Number: US-SK LIFE SCIENCE, INC.-SKPVG-2021-000519

PATIENT

DRUGS (5)
  1. BRIVIACT [Concomitant]
     Active Substance: BRIVARACETAM
     Indication: PRODUCT USED FOR UNKNOWN INDICATION
     Dosage: 50 MILLIGRAM, BID, 2 TABLETS
     Route: 065
     Dates: start: 202101
  2. XCOPRI [Suspect]
     Active Substance: CENOBAMATE
     Indication: EPILEPSY
     Dosage: 12.5 MILLIGRAM, ONCE DAILY IN THE MORNING
     Route: 048
     Dates: start: 20210401
  3. VIMPAT [Concomitant]
     Active Substance: LACOSAMIDE
     Indication: PRODUCT USED FOR UNKNOWN INDICATION
     Dosage: 200 MILLIGRAM, BID, 1.5 TABLET
     Route: 065
     Dates: start: 2008
  4. LORAZEPAM. [Concomitant]
     Active Substance: LORAZEPAM
     Indication: PRODUCT USED FOR UNKNOWN INDICATION
     Dosage: 1 MILLIGRAM, NIGHT, UNTIL NO LONGER NEEDED
     Route: 065
     Dates: start: 202105
  5. XCOPRI [Suspect]
     Active Substance: CENOBAMATE
     Dosage: 100 MILLIGRAM, QD, AT NIGHT
     Route: 048

REACTIONS (1)
  - Stress [Unknown]

NARRATIVE: CASE EVENT DATE: 20210415
